FAERS Safety Report 13835805 (Version 1)
Quarter: 2017Q3

REPORT INFORMATION
  Report Type: Spontaneous
  Country: CA (occurrence: CA)
  Receive Date: 20170804
  Receipt Date: 20170804
  Transmission Date: 20171127
  Serious: Yes (Hospitalization, Other)
  Sender: FDA-Public Use
  Company Number: CA-BAYER-2017-143689

PATIENT
  Age: 65 Year
  Sex: Female

DRUGS (9)
  1. ASPIRIN 81 MG [Suspect]
     Active Substance: ASPIRIN
     Indication: CORONARY ARTERY THROMBOSIS
     Dosage: 80 MG, QD
     Route: 048
     Dates: start: 1995
  2. VITAMIN B12 [Concomitant]
     Active Substance: CYANOCOBALAMIN
     Dosage: 1200 ?G, QD
     Route: 048
  3. TETRACYCLINE [Concomitant]
     Active Substance: TETRACYCLINE
     Dosage: UNK
     Route: 065
  4. SIMVASTATIN. [Concomitant]
     Active Substance: SIMVASTATIN
     Dosage: 40 MG, QD
     Route: 048
  5. CORTEF [Concomitant]
     Active Substance: HYDROCORTISONE
     Indication: HYPOTENSION
     Dosage: 10 MG, OM
     Route: 048
     Dates: start: 2012
  6. CALCIUM ERGOCALCIFEROL [CALCIUM,ERGOCALCIFEROL] [Concomitant]
     Dosage: 1 DF, QD
     Route: 048
  7. SYNTHROID [Concomitant]
     Active Substance: LEVOTHYROXINE SODIUM
     Dosage: 100 ?G, QD
     Route: 048
  8. CORTEF [Concomitant]
     Active Substance: HYDROCORTISONE
     Indication: HYPOTENSION
     Dosage: 2.5 MG, HS
     Route: 048
     Dates: start: 2012
  9. ACETAMINOPHEN. [Concomitant]
     Active Substance: ACETAMINOPHEN
     Indication: HEADACHE
     Dosage: 1000 MG, QID, PRN
     Route: 048

REACTIONS (6)
  - Cataract operation [None]
  - Hypotension [None]
  - Cystocele [None]
  - Radical hysterectomy [None]
  - Hypopituitarism [None]
  - Growth hormone deficiency [None]

NARRATIVE: CASE EVENT DATE: 2004
